FAERS Safety Report 9259491 (Version 2)
Quarter: 2013Q3

REPORT INFORMATION
  Report Type: Spontaneous
  Country: US (occurrence: US)
  Receive Date: 20130428
  Receipt Date: 20130708
  Transmission Date: 20140515
  Serious: Yes (Other)
  Sender: FDA-Public Use
  Company Number: US-AMGEN-USASP2013028756

PATIENT
  Age: 44 Year
  Sex: Female
  Weight: 78.01 kg

DRUGS (8)
  1. ENBREL [Suspect]
     Indication: PRODUCT USED FOR UNKNOWN INDICATION
     Dosage: 50 MG, QWK
     Route: 058
  2. CELEXA                             /00582602/ [Concomitant]
     Dosage: 10 MG, UNK
  3. EVOXAC [Concomitant]
     Dosage: 30 MG, UNK
  4. KLONOPIN [Concomitant]
     Dosage: 0.5 MG, UNK
  5. VESICARE [Concomitant]
     Dosage: 10 MG, UNK
  6. OMEPRAZOLE [Concomitant]
     Dosage: 10 MG, UNK
  7. RESTASIS [Concomitant]
     Dosage: UNK %, UNK
  8. VITAMIN B12                        /00056201/ [Concomitant]
     Dosage: 1000 CR UNK, UNK

REACTIONS (21)
  - Impaired healing [Unknown]
  - Postoperative wound complication [Unknown]
  - Local swelling [Unknown]
  - Limb operation [Unknown]
  - Joint lock [Unknown]
  - Arthralgia [Unknown]
  - Oropharyngeal pain [Unknown]
  - Respiratory tract congestion [Unknown]
  - Abdominal pain upper [Unknown]
  - Headache [Unknown]
  - Dysphonia [Unknown]
  - Vitamin D decreased [Unknown]
  - Condition aggravated [Unknown]
  - Swelling [Unknown]
  - Movement disorder [Unknown]
  - Blood folate decreased [Unknown]
  - Cheilitis [Unknown]
  - Lip swelling [Unknown]
  - Swollen tongue [Unknown]
  - Oral candidiasis [Unknown]
  - Influenza [Unknown]
